FAERS Safety Report 13971760 (Version 1)
Quarter: 2017Q3

REPORT INFORMATION
  Report Type: Spontaneous
  Country: US (occurrence: US)
  Receive Date: 20170914
  Receipt Date: 20170914
  Transmission Date: 20171128
  Serious: Yes (Other)
  Sender: FDA-Public Use
  Company Number: None

PATIENT
  Age: 39 Year
  Sex: Female
  Weight: 76.5 kg

DRUGS (3)
  1. ESTRADIOL. [Concomitant]
     Active Substance: ESTRADIOL
  2. BUPROPION 300MG XL [Suspect]
     Active Substance: BUPROPION
     Indication: ANXIETY
     Dosage: ?          QUANTITY:30 TABLET(S);?
     Route: 048
  3. NALTREXONE [Concomitant]
     Active Substance: NALTREXONE

REACTIONS (4)
  - Hypersensitivity [None]
  - Product quality issue [None]
  - Pruritus [None]
  - Product substitution issue [None]

NARRATIVE: CASE EVENT DATE: 20170805
